FAERS Safety Report 5454173-2 (Version None)
Quarter: 2007Q3

REPORT INFORMATION
  Report Type: 
  Country: None (occurrence: None)
  Receive Date: 20070917
  Receipt Date: 20070910
  Transmission Date: 20080115
  Serious: Yes (Other)
  Sender: FDA-Public Use
  Company Number: PHBS2007BR14862

PATIENT
  Age: 50 Year
  Sex: Female
  Weight: 79 kg

DRUGS (3)
  1. TRILEPTAL [Suspect]
     Dosage: 450 MG/DAY
     Route: 048
     Dates: start: 20070907
  2. FLOQUECTINA [Concomitant]
     Dosage: 20 MG, BID
  3. FENERGAN [Concomitant]
     Indication: DEPRESSION
     Dosage: 12.5 MG/DAY

REACTIONS (6)
  - ABNORMAL BEHAVIOUR [None]
  - CONFUSIONAL STATE [None]
  - IRRITABILITY [None]
  - MEMORY IMPAIRMENT [None]
  - PSYCHOTIC DISORDER [None]
  - SOMNOLENCE [None]
